FAERS Safety Report 8471803 (Version 2)
Quarter: 2013Q1

REPORT INFORMATION
  Report Type: Spontaneous
  Country: US (occurrence: US)
  Receive Date: 20120322
  Receipt Date: 20130322
  Transmission Date: 20140127
  Serious: No
  Sender: FDA-Public Use
  Company Number: US-BRISTOL-MYERS SQUIBB COMPANY-16376220

PATIENT
  Age: 73 Year
  Sex: Male

DRUGS (1)
  1. ERBITUX [Suspect]
     Indication: THROAT CANCER
     Dosage: STARTED 3 WEEKS AGO. 2 TREATMENTS, WEEKLY INFUSION

REACTIONS (5)
  - Rash [Not Recovered/Not Resolved]
  - Oropharyngeal pain [Unknown]
  - Dysphagia [Unknown]
  - Diarrhoea [Unknown]
  - Fatigue [Unknown]
